FAERS Safety Report 7412031-8 (Version None)
Quarter: 2011Q2

REPORT INFORMATION
  Report Type: 
  Country: None (occurrence: None)
  Receive Date: 20110405
  Receipt Date: 20110329
  Transmission Date: 20111010
  Serious: Yes (Life-Threatening, Hospitalization, Other)
  Sender: FDA-Public Use
  Company Number: 2010SP029881

PATIENT
  Age: 38 Year
  Sex: Female
  Weight: 53 kg

DRUGS (8)
  1. GASTER D [Concomitant]
  2. MILMAG [Concomitant]
  3. REBETOL [Suspect]
     Indication: HEPATITIS C
     Dosage: 600,400,200 MG, QD, PO
     Route: 048
     Dates: start: 20080711, end: 20090724
  4. REBETOL [Suspect]
     Indication: HEPATITIS C
     Dosage: 600,400,200 MG, QD, PO
     Route: 048
     Dates: start: 20080711
  5. REBETOL [Suspect]
     Indication: HEPATITIS C
     Dosage: 600,400,200 MG, QD, PO
     Route: 048
     Dates: end: 20090724
  6. URSO 250 [Concomitant]
  7. PROHEPARUM (LIVER HYDROLYSATE COMBINED DRUG) [Concomitant]
  8. PEG-INTRON (PEGINTERFERON ALFA-2B /01543001/) [Suspect]
     Indication: HEPATITIS C
     Dosage: 80 MCG, QW, SC
     Route: 058
     Dates: start: 20080711, end: 20090724

REACTIONS (7)
  - ANAEMIA [None]
  - CONTINUOUS HAEMODIAFILTRATION [None]
  - AUTOIMMUNE HEPATITIS [None]
  - AUTOIMMUNE THYROIDITIS [None]
  - LIVER TRANSPLANT [None]
  - HEPATIC ENCEPHALOPATHY [None]
  - ACUTE HEPATIC FAILURE [None]
